FAERS Safety Report 8247445-X (Version None)
Quarter: 2012Q1

REPORT INFORMATION
  Report Type: 
  Country: None (occurrence: None)
  Receive Date: 20120327
  Receipt Date: 20120312
  Transmission Date: 20120608
  Serious: Yes (Hospitalization)
  Sender: FDA-Public Use
  Company Number: JP-2011-11406

PATIENT
  Age: 54 Year
  Sex: Male

DRUGS (9)
  1. PROBUCOL [Suspect]
     Indication: DIABETIC NEPHROPATHY
     Dosage: 250 MG MILLIGRAM(S), BID, ORAL
     Route: 048
     Dates: start: 20101001, end: 20110901
  2. PROBUCOL [Suspect]
     Indication: DIABETIC NEPHROPATHY
     Dosage: 250 MG MILLIGRAM(S), BID, ORAL
     Route: 048
     Dates: start: 20110924
  3. CILOSTAZOL [Suspect]
     Indication: DIABETIC NEPHROPATHY
     Dosage: 100 MG MILLIGRAM(S), BID, ORAL,
     Route: 048
     Dates: start: 20110924
  4. CILOSTAZOL [Suspect]
     Indication: DIABETIC NEPHROPATHY
     Dosage: 100 MG MILLIGRAM(S), BID, ORAL,
     Route: 048
     Dates: start: 20101001, end: 20110901
  5. CALCIUM DOBESILATE (CALCIUM DOBESILATE) [Concomitant]
  6. ASPIRIN [Concomitant]
  7. INSULIN GLARGINE (INSULIN GLARGINE) [Concomitant]
  8. IRBESARTAN [Concomitant]
  9. NIFEDIPINE (NIFEDIPINE) TABLET [Concomitant]

REACTIONS (1)
  - BLOOD CREATINE PHOSPHOKINASE INCREASED [None]
